FAERS Safety Report 14085197 (Version 1)
Quarter: 2017Q4

REPORT INFORMATION
  Report Type: Spontaneous
  Country: GB (occurrence: GB)
  Receive Date: 20171013
  Receipt Date: 20171013
  Transmission Date: 20180321
  Serious: Yes (Hospitalization)
  Sender: FDA-Public Use
  Company Number: GB-CONCORDIA PHARMACEUTICALS INC.-GSH201710-005596

PATIENT
  Age: 74 Year
  Sex: Male

DRUGS (10)
  1. BENDROFLUMETHIAZIDE [Concomitant]
     Active Substance: BENDROFLUMETHIAZIDE
  2. AMOXICILLIN. [Concomitant]
     Active Substance: AMOXICILLIN
  3. PREDNISOLONE. [Suspect]
     Active Substance: PREDNISOLONE
     Indication: LOWER RESPIRATORY TRACT INFECTION
  4. ENALAPRIL [Concomitant]
     Active Substance: ENALAPRIL
  5. AMLODIPINE [Concomitant]
     Active Substance: AMLODIPINE BESYLATE
  6. ATORVASTATIN [Concomitant]
     Active Substance: ATORVASTATIN
     Dosage: AT NIGHT
  7. ASPIRIN. [Concomitant]
     Active Substance: ASPIRIN
     Dosage: HELD ON DISCHARGE
  8. OMEPRAZOLE. [Concomitant]
     Active Substance: OMEPRAZOLE
  9. SERETIDE [Concomitant]
     Active Substance: FLUTICASONE PROPIONATE\SALMETEROL XINAFOATE
  10. SALBUTAMOL [Concomitant]
     Active Substance: ALBUTEROL

REACTIONS (2)
  - Rectal haemorrhage [Unknown]
  - Melaena [Unknown]
